FAERS Safety Report 5084537-0 (Version None)
Quarter: 2006Q3

REPORT INFORMATION
  Report Type: 
  Country: None (occurrence: None)
  Receive Date: 20060821
  Receipt Date: 20060717
  Transmission Date: 20061208
  Serious: Yes (Hospitalization)
  Sender: FDA-Public Use
  Company Number: US-MERCK-0607USA03598

PATIENT
  Age: 83 Year
  Sex: Male
  Weight: 90 kg

DRUGS (2)
  1. VYTORIN [Suspect]
     Indication: HYPERLIPIDAEMIA
     Route: 048
     Dates: start: 20050901, end: 20060714
  2. FLOMAX (MORNIFLUMATE) [Suspect]
     Route: 048
     Dates: start: 20010701, end: 20060714

REACTIONS (5)
  - DRUG INTERACTION [None]
  - MUSCULAR WEAKNESS [None]
  - MYALGIA [None]
  - ORTHOSTATIC HYPOTENSION [None]
  - VERTIGO [None]
